FAERS Safety Report 8774391 (Version 2)
Quarter: 2012Q4

REPORT INFORMATION
  Report Type: 
  Country: US (occurrence: US)
  Receive Date: 20120907
  Receipt Date: 20121012
  Transmission Date: 20130627
  Serious: No
  Sender: FDA-Public Use
  Company Number: US-PFIZER INC-2012217798

PATIENT
  Age: 54 Year
  Sex: Female

DRUGS (4)
  1. LYRICA [Suspect]
     Indication: PAIN
     Dosage: 100 mg, 2x/day
     Route: 048
  2. ATRIPLA [Concomitant]
     Dosage: UNK
  3. BACTRIM [Concomitant]
     Dosage: UNK
  4. M.V.I. [Concomitant]
     Dosage: UNK

REACTIONS (2)
  - Herpes zoster [Unknown]
  - Malaise [Unknown]
